FAERS Safety Report 21788061 (Version 2)
Quarter: 2023Q1

REPORT INFORMATION
  Report Type: Report from Study
  Country: DE (occurrence: DE)
  Receive Date: 20221228
  Receipt Date: 20230120
  Transmission Date: 20230417
  Serious: Yes (Hospitalization)
  Sender: FDA-Public Use
  Company Number: DE-SA-SAC20221215001296

PATIENT
  Age: 54 Year
  Sex: Male
  Weight: 84 kg

DRUGS (13)
  1. ISATUXIMAB [Suspect]
     Active Substance: ISATUXIMAB
     Indication: Plasma cell myeloma
     Dosage: 910 MG
     Route: 042
     Dates: start: 20221020, end: 20221020
  2. ISATUXIMAB [Suspect]
     Active Substance: ISATUXIMAB
     Dosage: 910 MG
     Route: 042
     Dates: start: 20221201, end: 20221201
  3. CARFILZOMIB [Suspect]
     Active Substance: CARFILZOMIB
     Indication: Plasma cell myeloma
     Dosage: 120.96 MG
     Route: 042
     Dates: start: 20221020, end: 20221020
  4. CARFILZOMIB [Suspect]
     Active Substance: CARFILZOMIB
     Dosage: 120.96 MG
     Route: 042
     Dates: start: 20221201, end: 20221201
  5. LENALIDOMIDE [Suspect]
     Active Substance: LENALIDOMIDE
     Indication: Plasma cell myeloma
     Dosage: 5 MG
     Route: 048
     Dates: start: 20221020, end: 20221020
  6. LENALIDOMIDE [Suspect]
     Active Substance: LENALIDOMIDE
     Dosage: 5 MG
     Route: 048
     Dates: start: 20221208, end: 20221208
  7. DEXAMETHASONE [Concomitant]
     Active Substance: DEXAMETHASONE
     Indication: Plasma cell myeloma
     Dosage: 40 MG
     Dates: start: 20221208, end: 20221208
  8. DEXAMETHASONE [Concomitant]
     Active Substance: DEXAMETHASONE
     Dosage: 40 MG
     Dates: start: 20221020, end: 20221020
  9. ACYCLOVIR [Concomitant]
     Active Substance: ACYCLOVIR
     Indication: Prophylaxis
     Dosage: 200 MG, BID
     Dates: start: 20221020, end: 20221213
  10. SULFAMETHOXAZOLE\TRIMETHOPRIM [Concomitant]
     Active Substance: SULFAMETHOXAZOLE\TRIMETHOPRIM
     Indication: Prophylaxis
     Dosage: 960 MG, BIW
     Route: 048
     Dates: start: 20221020, end: 20221213
  11. CIPROFLOXACIN [Concomitant]
     Active Substance: CIPROFLOXACIN
     Indication: Prophylaxis
     Dosage: 500 MG, BID
     Route: 048
     Dates: start: 20221020, end: 20221213
  12. ASPIRIN [Concomitant]
     Active Substance: ASPIRIN
     Indication: Prophylaxis
     Dosage: 100 MG, QD
     Route: 048
     Dates: start: 20221020, end: 20221213
  13. HYDROMORPHONE [Concomitant]
     Active Substance: HYDROMORPHONE
     Indication: Bone pain
     Dosage: 4 MG, BID
     Route: 048
     Dates: start: 20221021, end: 20221213

REACTIONS (2)
  - Device related sepsis [Recovered/Resolved]
  - Gastritis [Recovered/Resolved]

NARRATIVE: CASE EVENT DATE: 20221213
